FAERS Safety Report 4748184-X (Version None)
Quarter: 2005Q3

REPORT INFORMATION
  Report Type: 
  Country: None (occurrence: None)
  Receive Date: 20050818
  Receipt Date: 20050805
  Transmission Date: 20060218
  Serious: Yes (Other)
  Sender: FDA-Public Use
  Company Number: JP-JNJFOC-20050705886

PATIENT
  Sex: Female

DRUGS (10)
  1. ITRIZOLE [Suspect]
     Indication: ONYCHOMYCOSIS
     Route: 048
     Dates: start: 20050624, end: 20050629
  2. RISPERDAL [Concomitant]
     Indication: SCHIZOPHRENIA
     Route: 048
  3. HALOPERIDOL [Concomitant]
     Indication: SCHIZOPHRENIA
     Route: 065
  4. QUETIAPINE FUMARATE [Concomitant]
     Indication: SCHIZOPHRENIA
     Route: 048
  5. BIPERIDEN HYDROCHLORIDE [Concomitant]
     Route: 048
  6. SENNA [Concomitant]
     Indication: CONSTIPATION
     Route: 048
  7. LACTOMIN [Concomitant]
     Indication: CONSTIPATION
     Route: 048
  8. DAI KENCHU TO [Concomitant]
     Indication: CONSTIPATION
     Route: 048
  9. NIMETAZEPAM [Concomitant]
     Indication: SCHIZOPHRENIA
     Route: 048
  10. LEVOMEPROMAZINE MALEATE [Concomitant]
     Indication: SCHIZOPHRENIA
     Route: 048

REACTIONS (7)
  - ALANINE AMINOTRANSFERASE INCREASED [None]
  - ASPARTATE AMINOTRANSFERASE INCREASED [None]
  - BLOOD CREATINE PHOSPHOKINASE INCREASED [None]
  - DEPRESSED LEVEL OF CONSCIOUSNESS [None]
  - DIZZINESS [None]
  - MUSCLE RIGIDITY [None]
  - POSTURE ABNORMAL [None]
